FAERS Safety Report 17276516 (Version 1)
Quarter: 2020Q1

REPORT INFORMATION
  Report Type: Spontaneous
  Country: US (occurrence: US)
  Receive Date: 20200116
  Receipt Date: 20200116
  Transmission Date: 20200409
  Serious: No
  Sender: FDA-Public Use
  Company Number: US-BAYER-2020-006088

PATIENT
  Sex: Female
  Weight: 102.04 kg

DRUGS (3)
  1. TYVASO [Suspect]
     Active Substance: TREPROSTINIL
     Indication: PULMONARY ARTERIAL HYPERTENSION
     Dosage: UNK UNK, QD
     Route: 055
     Dates: start: 20190806
  2. ADEMPAS [Suspect]
     Active Substance: RIOCIGUAT
  3. OPSUMIT [Concomitant]
     Active Substance: MACITENTAN
     Dosage: UNK

REACTIONS (1)
  - Drug ineffective [None]
